FAERS Safety Report 9229118 (Version 1)
Quarter: 2013Q2

REPORT INFORMATION
  Report Type: Other
  Country: IT (occurrence: IT)
  Receive Date: 20130412
  Receipt Date: 20130412
  Transmission Date: 20140414
  Serious: Yes (Hospitalization)
  Sender: FDA-Public Use
  Company Number: IT-NICOBRDEVP-2013-06044

PATIENT
  Sex: Male

DRUGS (1)
  1. RAMIPRIL (UNKNOWN) [Suspect]
     Indication: PRODUCT USED FOR UNKNOWN INDICATION
     Dosage: UNK, UNKNOWN
     Route: 065

REACTIONS (4)
  - Asthenia [Recovered/Resolved]
  - Dysarthria [Recovered/Resolved]
  - Hyperkalaemia [Recovered/Resolved]
  - International normalised ratio increased [Recovered/Resolved]
